FAERS Safety Report 8180389-0 (Version None)
Quarter: 2012Q1

REPORT INFORMATION
  Report Type: 
  Country: None (occurrence: None)
  Receive Date: 20120302
  Receipt Date: 20120102
  Transmission Date: 20120608
  Serious: No
  Sender: FDA-Public Use
  Company Number: US-COVIDIEN/TYCO HEALTHCARE/MALLINCKRODT-T201200004

PATIENT
  Sex: Male
  Weight: 107.48 kg

DRUGS (9)
  1. MELATONIN [Concomitant]
     Indication: SLEEP DISORDER
     Dosage: 2 TABS AS NEEDED
     Route: 048
  2. LISINOPRIL [Concomitant]
     Indication: HYPERTENSION
     Dosage: 20 MG, UNK
     Route: 048
  3. ROXICODONE [Concomitant]
     Indication: BACK PAIN
     Dosage: 30 MG, UNK
     Route: 048
  4. GLIMEPIRIDE [Concomitant]
     Dosage: 4 MG, UNK
  5. RESTORIL [Suspect]
     Indication: SLEEP DISORDER
     Dosage: 30 MG AT NIGHT AS NEEDED
     Route: 048
     Dates: start: 20110101
  6. BUPROPION HCL [Concomitant]
     Indication: ANXIETY
     Dosage: 75 MG, UNK
  7. DYAZIDE [Concomitant]
     Indication: HYPERTENSION
     Dosage: 37.5/25
     Route: 048
  8. FLEXPEN [Concomitant]
     Indication: DIABETES MELLITUS
     Dosage: 30 UNITS QD
  9. METFORMIN HCL [Concomitant]
     Indication: DIABETES MELLITUS
     Dosage: 500, 2 TABS QD

REACTIONS (3)
  - HUNGER [None]
  - HYPERPHAGIA [None]
  - DRUG EFFECT DECREASED [None]
